FAERS Safety Report 7758197-1 (Version None)
Quarter: 2011Q3

REPORT INFORMATION
  Report Type: 
  Country: None (occurrence: None)
  Receive Date: 20110919
  Receipt Date: 20110906
  Transmission Date: 20111222
  Serious: Yes (Hospitalization)
  Sender: FDA-Public Use
  Company Number: GB-AMGEN-GBRCT2011046834

PATIENT
  Age: 11 Year
  Sex: Female
  Weight: 34.1 kg

DRUGS (1)
  1. ETANERCEPT [Suspect]
     Indication: JUVENILE ARTHRITIS
     Dosage: 6.25 MG, 2 TIMES/WK
     Route: 058
     Dates: start: 20040806

REACTIONS (1)
  - JUVENILE ARTHRITIS [None]
